FAERS Safety Report 9667599 (Version 3)
Quarter: 2014Q1

REPORT INFORMATION
  Report Type: Report from Study
  Country: US (occurrence: US)
  Receive Date: 20131104
  Receipt Date: 20140312
  Transmission Date: 20141002
  Serious: Yes (Hospitalization)
  Sender: FDA-Public Use
  Company Number: US-BAYER-2013-087578

PATIENT
  Age: 72 Year
  Sex: Male
  Weight: 112 kg

DRUGS (5)
  1. ALPHARADIN [Suspect]
     Indication: PROSTATE CANCER
     Dosage: 9.3 ML, QD
     Route: 042
     Dates: start: 20130619, end: 20130619
  2. ALPHARADIN [Suspect]
     Indication: PROSTATE CANCER
     Dosage: 9.2 ML, QD
     Route: 042
     Dates: start: 20130522, end: 20130522
  3. ALPHARADIN [Suspect]
     Indication: PROSTATE CANCER
     Dosage: 7.44 ML, QD
     Route: 042
     Dates: start: 20130423, end: 20130423
  4. COUMADIN [Concomitant]
     Dosage: 2.5 MG, QD
  5. TRAMADOL [Concomitant]
     Indication: PAIN
     Dosage: DAILY DOSE 200 MG
     Route: 048
     Dates: start: 20120619

REACTIONS (2)
  - Upper gastrointestinal haemorrhage [Recovering/Resolving]
  - Anaemia [Recovered/Resolved]
